FAERS Safety Report 18251433 (Version 1)
Quarter: 2020Q3

REPORT INFORMATION
  Report Type: Spontaneous
  Country: US (occurrence: US)
  Receive Date: 20200910
  Receipt Date: 20200910
  Transmission Date: 20201103
  Serious: No
  Sender: FDA-Public Use
  Company Number: US-PFIZER INC-2020349945

PATIENT
  Age: 24 Year
  Sex: Male

DRUGS (1)
  1. GENOTROPIN [Suspect]
     Active Substance: SOMATROPIN
     Dosage: 2 MG, DAILY

REACTIONS (6)
  - Weight increased [Unknown]
  - Muscle spasms [Unknown]
  - Myalgia [Unknown]
  - Dry skin [Unknown]
  - Peripheral swelling [Unknown]
  - Fatigue [Unknown]
